FAERS Safety Report 6342909-8 (Version None)
Quarter: 2009Q3

REPORT INFORMATION
  Report Type: 
  Country: None (occurrence: None)
  Receive Date: 20090821
  Receipt Date: 20090608
  Transmission Date: 20100115
  Serious: No
  Sender: FDA-Public Use
  Company Number: 8047622

PATIENT
  Age: 48 Year
  Sex: Male
  Weight: 71.8 kg

DRUGS (3)
  1. CIMZIA [Suspect]
     Indication: CROHN'S DISEASE
     Dosage: 200 MG /M SC
     Route: 058
     Dates: start: 20081201
  2. MERCAPTOPURINE [Concomitant]
  3. TYLENOL [Concomitant]

REACTIONS (1)
  - NASOPHARYNGITIS [None]
